FAERS Safety Report 9188752 (Version 2)
Quarter: 2013Q2

REPORT INFORMATION
  Report Type: Spontaneous
  Country: US (occurrence: US)
  Receive Date: 20130326
  Receipt Date: 20130522
  Transmission Date: 20140414
  Serious: Yes (Other)
  Sender: FDA-Public Use
  Company Number: US-PFIZER INC-2013093043

PATIENT
  Age: 43 Year
  Sex: Male

DRUGS (4)
  1. CHANTIX [Suspect]
     Indication: SMOKING CESSATION THERAPY
     Dosage: STARTER MONTH PACK
     Dates: start: 20070612, end: 20070922
  2. CHANTIX [Suspect]
     Dosage: CONTINUING MONTH PACK
     Dates: start: 20070720
  3. CHANTIX [Suspect]
     Dosage: CONTINUING MONTH PACK
     Dates: start: 20070824
  4. CIALIS [Concomitant]
     Dosage: 20 MG, UNK
     Dates: start: 20070612

REACTIONS (2)
  - Suicidal ideation [Unknown]
  - Depression [Unknown]
